FAERS Safety Report 8515667-6 (Version None)
Quarter: 2012Q3

REPORT INFORMATION
  Report Type: 
  Country: None (occurrence: None)
  Receive Date: 20120717
  Receipt Date: 20120711
  Transmission Date: 20120928
  Serious: Yes (Other)
  Sender: FDA-Public Use
  Company Number: PHFR2012IE003472

PATIENT
  Sex: Male
  Weight: 65 kg

DRUGS (2)
  1. LITHIUM [Concomitant]
     Indication: AFFECTIVE DISORDER
     Dosage: 800 MG, UNK
     Route: 048
     Dates: start: 20120619
  2. CLOZARIL [Suspect]
     Indication: SCHIZOPHRENIA
     Dosage: 300 UKN, UNK
     Route: 048
     Dates: start: 20110225

REACTIONS (2)
  - INCORRECT DOSE ADMINISTERED [None]
  - OROPHARYNGEAL PAIN [None]
